FAERS Safety Report 6425525-9 (Version None)
Quarter: 2009Q4

REPORT INFORMATION
  Report Type: 
  Country: None (occurrence: None)
  Receive Date: 20091103
  Receipt Date: 20091005
  Transmission Date: 20100525
  Serious: No
  Sender: FDA-Public Use
  Company Number: US-JNJFOC-20090903426

PATIENT
  Sex: Female

DRUGS (3)
  1. INVEGA [Suspect]
     Indication: BIPOLAR II DISORDER
     Route: 048
  2. LITHIUM CARBONATE [Concomitant]
     Indication: DRUG USE FOR UNKNOWN INDICATION
  3. PROZAC [Concomitant]
     Indication: DRUG USE FOR UNKNOWN INDICATION

REACTIONS (3)
  - BRUXISM [None]
  - DYSTONIA [None]
  - TREMOR [None]
